FAERS Safety Report 6979680-2 (Version None)
Quarter: 2010Q3

REPORT INFORMATION
  Report Type: 
  Country: None (occurrence: None)
  Receive Date: 20100908
  Receipt Date: 20100827
  Transmission Date: 20110219
  Serious: Yes (Other)
  Sender: FDA-Public Use
  Company Number: A-CH2010-39353

PATIENT
  Age: 52 Year
  Sex: Female
  Weight: 60 kg

DRUGS (4)
  1. TRACLEER [Suspect]
     Indication: PULMONARY ARTERIAL HYPERTENSION
     Dosage: 62.5 MG, BID, ORAL, 125 MG, BID, ORAL
     Route: 048
     Dates: start: 20091101, end: 20091201
  2. TRACLEER [Suspect]
     Indication: PULMONARY ARTERIAL HYPERTENSION
     Dosage: 62.5 MG, BID, ORAL, 125 MG, BID, ORAL
     Route: 048
     Dates: start: 20091201, end: 20100201
  3. PANANGIN (ASPARTATE POTASSIUM, MAGNESIUM ASPARTATE) [Concomitant]
  4. ASPIRIN [Concomitant]

REACTIONS (6)
  - ARRHYTHMIA [None]
  - DISEASE PROGRESSION [None]
  - DRUG INEFFECTIVE [None]
  - DYSPNOEA [None]
  - GASTRITIS [None]
  - PULMONARY ARTERIAL HYPERTENSION [None]
